FAERS Safety Report 12456640 (Version 2)
Quarter: 2016Q3

REPORT INFORMATION
  Report Type: Spontaneous
  Country: US (occurrence: US)
  Receive Date: 20160610
  Receipt Date: 20160718
  Transmission Date: 20161109
  Serious: Yes (Other)
  Sender: FDA-Public Use
  Company Number: US-BAYER-2016-114494

PATIENT
  Age: 30 Year
  Sex: Female
  Weight: 62.59 kg

DRUGS (2)
  1. MIRENA [Suspect]
     Active Substance: LEVONORGESTREL
     Indication: CONTRACEPTION
     Dosage: 20 MCG/24HR, CONT
     Route: 015
     Dates: start: 20160425, end: 20160425
  2. MIRENA [Suspect]
     Active Substance: LEVONORGESTREL
     Indication: CONTRACEPTION
     Dosage: 20 MCG/24HR, CONT
     Route: 015
     Dates: start: 20160425

REACTIONS (8)
  - Genital haemorrhage [None]
  - Complication of device insertion [None]
  - Complication of device insertion [None]
  - Menometrorrhagia [None]
  - Embedded device [Recovered/Resolved]
  - Post procedural haemorrhage [None]
  - Post procedural discomfort [None]
  - Procedural pain [None]

NARRATIVE: CASE EVENT DATE: 2016
